FAERS Safety Report 7324652-1 (Version None)
Quarter: 2011Q1

REPORT INFORMATION
  Report Type: 
  Country: None (occurrence: None)
  Receive Date: 20110301
  Receipt Date: 20110218
  Transmission Date: 20110831
  Serious: Yes (Other)
  Sender: FDA-Public Use
  Company Number: PHHY2011BR14739

PATIENT
  Sex: Female

DRUGS (3)
  1. CAPTOPRIL [Concomitant]
  2. LOSARTAN POTASSIUM [Suspect]
     Route: 048
  3. ATENOLOL [Suspect]
     Route: 048

REACTIONS (1)
  - RENAL NEOPLASM [None]
